FAERS Safety Report 6257695-X (Version None)
Quarter: 2009Q3

REPORT INFORMATION
  Report Type: 
  Country: None (occurrence: None)
  Receive Date: 20090706
  Receipt Date: 20090625
  Transmission Date: 20100115
  Serious: Yes (Death, Hospitalization)
  Sender: FDA-Public Use
  Company Number: DE-TEVA-199897ISR

PATIENT
  Age: 12 Month
  Sex: Female
  Weight: 8.74 kg

DRUGS (1)
  1. PROPRANOLOL HYDROCHLORIDE [Suspect]
     Indication: HAEMANGIOMA
     Dates: start: 20081129

REACTIONS (1)
  - HYPOGLYCAEMIC SEIZURE [None]
